FAERS Safety Report 10428120 (Version 1)
Quarter: 2014Q3

REPORT INFORMATION
  Report Type: Spontaneous
  Country: US (occurrence: US)
  Receive Date: 20140903
  Receipt Date: 20140903
  Transmission Date: 20150326
  Serious: Yes (Other)
  Sender: FDA-Public Use
  Company Number: US-GILEAD-2014-0113986

PATIENT
  Age: 43 Year
  Sex: Female

DRUGS (14)
  1. PHENERGAN [Concomitant]
     Active Substance: PROMETHAZINE HYDROCHLORIDE
  2. FOLIC ACID. [Concomitant]
     Active Substance: FOLIC ACID
  3. NEXIUM [Concomitant]
     Active Substance: ESOMEPRAZOLE MAGNESIUM
  4. ENALAPRIL [Concomitant]
     Active Substance: ENALAPRIL
  5. PERCOCET [Concomitant]
     Active Substance: ACETAMINOPHEN\OXYCODONE HYDROCHLORIDE
  6. LETAIRIS [Suspect]
     Active Substance: AMBRISENTAN
     Indication: PRODUCT USED FOR UNKNOWN INDICATION
     Dosage: 10 MG, QD
     Route: 065
     Dates: start: 20120625
  7. COLACE [Concomitant]
     Active Substance: DOCUSATE SODIUM
  8. KLOR-CON [Concomitant]
     Active Substance: POTASSIUM CHLORIDE
  9. MULTIVITAMIN                       /07504101/ [Concomitant]
     Active Substance: VITAMINS
  10. HYDROXYUREA. [Concomitant]
     Active Substance: HYDROXYUREA
  11. TYVASO [Concomitant]
     Active Substance: TREPROSTINIL
  12. SILDENAFIL [Concomitant]
     Active Substance: SILDENAFIL
  13. LASIX [Concomitant]
     Active Substance: FUROSEMIDE
  14. COUMADIN [Concomitant]
     Active Substance: WARFARIN SODIUM

REACTIONS (2)
  - Transfusion [Unknown]
  - Blood count abnormal [Unknown]

NARRATIVE: CASE EVENT DATE: 20140828
